FAERS Safety Report 13999943 (Version 1)
Quarter: 2017Q3

REPORT INFORMATION
  Report Type: Report from Study
  Country: BE (occurrence: BE)
  Receive Date: 20170922
  Receipt Date: 20170922
  Transmission Date: 20171128
  Serious: Yes (Death)
  Sender: FDA-Public Use
  Company Number: BE-PFIZER INC-2017408427

PATIENT

DRUGS (6)
  1. DOCETAXEL. [Suspect]
     Active Substance: DOCETAXEL
     Indication: SQUAMOUS CELL CARCINOMA OF HEAD AND NECK
     Dosage: 75 MG/M2 ON DAY 1 EVERY 3 WEEKS (4 CYCLES; INDUCTION)
  2. FLUOROURACIL. [Suspect]
     Active Substance: FLUOROURACIL
     Indication: SQUAMOUS CELL CARCINOMA OF HEAD AND NECK
     Dosage: 750 MG/M2/DAY AS A CONTINUOUS INFUSION DAYS 1-5
     Route: 042
  3. CETUXIMAB. [Suspect]
     Active Substance: CETUXIMAB
     Indication: SQUAMOUS CELL CARCINOMA OF HEAD AND NECK
     Dosage: LOADING DOSE OF 400 MG/M2 ON DAY1 OF THE FIRST INDUCTION TPF-E CYCLE
  4. CISPLATIN. [Suspect]
     Active Substance: CISPLATIN
     Dosage: 75 MG/M2 DAY1 EVERY 3 WEEKS; 4 CYCLES OF TPF-E (INDUCTION)
  5. CETUXIMAB. [Suspect]
     Active Substance: CETUXIMAB
     Dosage: 250 MG/M2, WEEKLY (DURING INDUCTION CHEMOTHERAPY AND CONCURRENT CHEMORADIOTHERAPY)
  6. CISPLATIN. [Suspect]
     Active Substance: CISPLATIN
     Indication: SQUAMOUS CELL CARCINOMA OF HEAD AND NECK
     Dosage: 40 MG/M2, CYCLIC (WEEKLY FOR THE ENTIRE DURATION OF RT)

REACTIONS (1)
  - General physical health deterioration [Fatal]
